FAERS Safety Report 5291611-2 (Version None)
Quarter: 2007Q2

REPORT INFORMATION
  Report Type: 
  Country: None (occurrence: None)
  Receive Date: 20070410
  Receipt Date: 20070305
  Transmission Date: 20071010
  Serious: Yes (Hospitalization)
  Sender: FDA-Public Use
  Company Number: SG-RB-005678-07

PATIENT

DRUGS (1)
  1. BUPRENORPHINE HYDROCHLORIDE (SP INJECTABLE/ORAL) [Suspect]
     Dosage: UNKNOWN
     Route: 042

REACTIONS (10)
  - DRUG WITHDRAWAL MAINTENANCE THERAPY [None]
  - ENDOCARDITIS [None]
  - GANGRENE [None]
  - HEPATITIS ACUTE [None]
  - LUNG ABSCESS [None]
  - REMOVAL OF FOREIGN BODY [None]
  - SEPSIS [None]
  - SKIN INFECTION [None]
  - SOFT TISSUE INFECTION [None]
  - THROMBOPHLEBITIS [None]
